FAERS Safety Report 4895416-3 (Version None)
Quarter: 2006Q1

REPORT INFORMATION
  Report Type: 
  Country: None (occurrence: None)
  Receive Date: 20060130
  Receipt Date: 20050930
  Transmission Date: 20060701
  Serious: Yes (Other)
  Sender: FDA-Public Use
  Company Number: US-GLAXOSMITHKLINE-A0576587A

PATIENT
  Age: 33 Year
  Sex: Male

DRUGS (4)
  1. COMBIVIR [Suspect]
     Indication: HIV INFECTION
     Dosage: 150MG TWICE PER DAY
     Route: 048
     Dates: start: 20050501
  2. CRIXIVAN [Concomitant]
  3. NORVIR [Concomitant]
  4. NAPROSYN [Concomitant]

REACTIONS (1)
  - CONVULSION [None]
